FAERS Safety Report 23840479 (Version 1)
Quarter: 2024Q2

REPORT INFORMATION
  Report Type: Spontaneous
  Country: JP (occurrence: JP)
  Receive Date: 20240510
  Receipt Date: 20240510
  Transmission Date: 20240716
  Serious: Yes (Death)
  Sender: FDA-Public Use
  Company Number: JP-VERICEL-JP-VCEL-24-000167

PATIENT
  Age: 84 Year
  Sex: Female
  Weight: 44.3 kg

DRUGS (3)
  1. BROMELAINS [Suspect]
     Active Substance: BROMELAINS
     Indication: Thermal burn
     Dosage: 30 GRAM, SINGLE
     Route: 061
     Dates: start: 20230924, end: 20230924
  2. MIDAZOLAM [Concomitant]
     Active Substance: MIDAZOLAM
     Indication: Analgesic therapy
     Dosage: UNK
     Route: 041
     Dates: start: 20230924, end: 20230924
  3. FENTANYL ACTAVIS [FENTANYL CITRATE] [Concomitant]
     Indication: Analgesic therapy
     Dosage: UNK
     Route: 041
     Dates: start: 20230924, end: 20230924

REACTIONS (2)
  - Death [Fatal]
  - Haemorrhage subcutaneous [None]

NARRATIVE: CASE EVENT DATE: 20230924
